FAERS Safety Report 5177853-5 (Version None)
Quarter: 2006Q4

REPORT INFORMATION
  Report Type: 
  Country: None (occurrence: None)
  Receive Date: 20061208
  Receipt Date: 20061127
  Transmission Date: 20070319
  Serious: Yes (Other)
  Sender: FDA-Public Use
  Company Number: 2006147405

PATIENT
  Age: 65 Year
  Sex: Male

DRUGS (1)
  1. XALATAN [Suspect]
     Dosage: (ONCE DAILY)

REACTIONS (3)
  - HERPES SIMPLEX OPHTHALMIC [None]
  - POST PROCEDURAL COMPLICATION [None]
  - RENAL TUMOUR EXCISION [None]
